FAERS Safety Report 4777461-1 (Version None)
Quarter: 2005Q3

REPORT INFORMATION
  Report Type: 
  Country: None (occurrence: None)
  Receive Date: 20050915
  Receipt Date: 20050829
  Transmission Date: 20060218
  Serious: Yes (Death, Hospitalization, Other)
  Sender: FDA-Public Use
  Company Number: US_0501111264

PATIENT
  Age: 85 Year
  Sex: Female

DRUGS (2)
  1. EVISTA [Suspect]
  2. ANTIBIOTIC [Concomitant]

REACTIONS (4)
  - DEPRESSED LEVEL OF CONSCIOUSNESS [None]
  - JOINT SWELLING [None]
  - OEDEMA PERIPHERAL [None]
  - UNEVALUABLE EVENT [None]
